FAERS Safety Report 11218472 (Version 1)
Quarter: 2015Q2

REPORT INFORMATION
  Report Type: Spontaneous
  Country: US (occurrence: US)
  Receive Date: 20150625
  Receipt Date: 20150625
  Transmission Date: 20150821
  Serious: No
  Sender: FDA-Public Use
  Company Number: US-PFIZER INC-2015207903

PATIENT
  Age: 53 Year
  Sex: Female
  Weight: 58.96 kg

DRUGS (5)
  1. LYRICA [Suspect]
     Active Substance: PREGABALIN
     Dosage: 100 MG, 2X/DAY
     Route: 048
  2. DICLOFENAC [Concomitant]
     Active Substance: DICLOFENAC
     Dosage: 50 MG TWICE A DAY OR AS NEEDED)
  3. LYRICA [Suspect]
     Active Substance: PREGABALIN
     Indication: NEURALGIA
     Dosage: 50 MG, 2X/DAY
     Route: 048
  4. OXYCODONE [Concomitant]
     Active Substance: OXYCODONE
     Dosage: 10 MG, 4X/DAY
  5. LYRICA [Suspect]
     Active Substance: PREGABALIN
     Dosage: 75 MG IN THE MORNING AND 100 MG AT NIGHT, 2X/DAY
     Route: 048

REACTIONS (2)
  - Tongue blistering [Recovered/Resolved]
  - Dysgeusia [Not Recovered/Not Resolved]
